FAERS Safety Report 15604200 (Version 3)
Quarter: 2020Q1

REPORT INFORMATION
  Report Type: Spontaneous
  Country: DE (occurrence: DE)
  Receive Date: 20181110
  Receipt Date: 20200306
  Transmission Date: 20200409
  Serious: Yes (Life-Threatening, Hospitalization)
  Sender: FDA-Public Use
  Company Number: DE-B.I. PHARMACEUTICALS,INC./RIDGEFIELD-2018-BI-054978

PATIENT
  Age: 23 Year
  Sex: Female

DRUGS (1)
  1. JARDIANCE [Suspect]
     Active Substance: EMPAGLIFLOZIN
     Indication: TYPE 1 DIABETES MELLITUS
     Route: 048
     Dates: end: 20181107

REACTIONS (16)
  - Hyperventilation [Recovered/Resolved]
  - Off label use [Unknown]
  - Infection [Recovered/Resolved]
  - Urine ketone body present [Unknown]
  - General physical health deterioration [Unknown]
  - pH body fluid abnormal [Recovered/Resolved]
  - Nasopharyngitis [Unknown]
  - Feeling abnormal [Unknown]
  - Kussmaul respiration [Unknown]
  - Altered state of consciousness [Unknown]
  - Nitrite urine absent [Recovered/Resolved]
  - Urinary tract infection [Recovered/Resolved]
  - Ketoacidosis [Recovered/Resolved]
  - Sinus tachycardia [Unknown]
  - Hyperglycaemia [Unknown]
  - Dehydration [Unknown]

NARRATIVE: CASE EVENT DATE: 20181105
